FAERS Safety Report 6003340-8 (Version None)
Quarter: 2008Q4

REPORT INFORMATION
  Report Type: 
  Country: None (occurrence: None)
  Receive Date: 20081212
  Receipt Date: 20081128
  Transmission Date: 20090506
  Serious: Yes (Disabling, Other)
  Sender: FDA-Public Use
  Company Number: 2008AL012260

PATIENT
  Age: 51 Year
  Sex: Female

DRUGS (9)
  1. MIRTAZAPINE [Suspect]
     Indication: DEPRESSION
     Dosage: 15 MG; PO
     Route: 048
     Dates: start: 20080923, end: 20081009
  2. SERTRALINE [Concomitant]
  3. ZOPICLONE [Concomitant]
  4. ACETAMINOPHEN [Concomitant]
  5. NULYTELY [Concomitant]
  6. SOLIFENACIN [Concomitant]
  7. NICOTINE [Concomitant]
  8. ARTHROTEC [Concomitant]
  9. CALCIHEW [Concomitant]

REACTIONS (5)
  - ABDOMINAL DISTENSION [None]
  - GINGIVAL PAIN [None]
  - GLOSSODYNIA [None]
  - HYPERSENSITIVITY [None]
  - JOINT SWELLING [None]
